FAERS Safety Report 24546253 (Version 3)
Quarter: 2024Q4

REPORT INFORMATION
  Report Type: Spontaneous
  Country: US (occurrence: US)
  Receive Date: 20241024
  Receipt Date: 20241202
  Transmission Date: 20250115
  Serious: Yes (Disabling, Other)
  Sender: PFIZER
  Company Number: US-PFIZER INC-PV202400136751

PATIENT
  Age: 66 Year
  Sex: Female
  Weight: 72.562 kg

DRUGS (4)
  1. TIVDAK [Suspect]
     Active Substance: TISOTUMAB VEDOTIN-TFTV
     Indication: Cervix carcinoma
     Dosage: UNK, CYCLIC
     Route: 042
     Dates: start: 20220720, end: 20230301
  2. CELEXA [Concomitant]
     Active Substance: CITALOPRAM HYDROBROMIDE
     Indication: Depression
     Dosage: 10 MG, DAILY
  3. TRAZODONE [Concomitant]
     Active Substance: TRAZODONE HYDROCHLORIDE
     Indication: Anxiety
     Dosage: 100 MG, DAILY
  4. CYMBALTA [Concomitant]
     Active Substance: DULOXETINE HYDROCHLORIDE
     Indication: Nerve injury
     Dosage: 60 MG, DAILY

REACTIONS (9)
  - Gait disturbance [Recovered/Resolved]
  - Neuropathy peripheral [Not Recovered/Not Resolved]
  - Ocular discomfort [Recovered/Resolved]
  - Eyelid margin crusting [Recovered/Resolved]
  - Nausea [Recovered/Resolved]
  - Fatigue [Recovered/Resolved]
  - Depression [Recovered/Resolved]
  - Alopecia [Recovered/Resolved]
  - Neoplasm progression [Recovered/Resolved]

NARRATIVE: CASE EVENT DATE: 20220701
